FAERS Safety Report 7884888-8 (Version None)
Quarter: 2011Q4

REPORT INFORMATION
  Report Type: 
  Country: None (occurrence: None)
  Receive Date: 20111102
  Receipt Date: 20111101
  Transmission Date: 20120403
  Serious: Yes (Death)
  Sender: FDA-Public Use
  Company Number: US-VERTEX PHARMACEUTICALS INC.-AE-2011-002064

PATIENT
  Sex: Male

DRUGS (8)
  1. INCIVEK [Suspect]
     Indication: HEPATITIS C
     Route: 048
     Dates: start: 20110623
  2. NAUSEA MEDICATION [Concomitant]
  3. PEGASYS [Concomitant]
     Indication: HEPATITIS C
     Dates: start: 20110623
  4. ANTIBIOTICS [Concomitant]
  5. RIBAVIRIN [Concomitant]
     Indication: HEPATITIS C
     Dates: start: 20110623
  6. SLEEP MEDICATION [Concomitant]
  7. PAIN MEDICATION [Concomitant]
  8. ANTI-DEPRESSION MEDICATION [Concomitant]

REACTIONS (1)
  - DEATH [None]
